FAERS Safety Report 7612330-0 (Version None)
Quarter: 2011Q3

REPORT INFORMATION
  Report Type: 
  Country: None (occurrence: None)
  Receive Date: 20110715
  Receipt Date: 20110706
  Transmission Date: 20111222
  Serious: Yes (Hospitalization)
  Sender: FDA-Public Use
  Company Number: US-ASTRAZENECA-2010SE18635

PATIENT
  Age: 58 Year
  Sex: Male
  Weight: 77.1 kg

DRUGS (19)
  1. SEROQUEL [Suspect]
     Indication: AFFECTIVE DISORDER
     Route: 048
     Dates: start: 20060101, end: 20100401
  2. SEROQUEL [Suspect]
     Indication: SLEEP DISORDER
     Route: 048
     Dates: start: 20060101, end: 20100401
  3. SEROQUEL [Suspect]
     Dosage: HALF OF A 300 MG TABLET AT NIGHT
     Route: 048
     Dates: start: 20100901
  4. SEROQUEL [Suspect]
     Route: 048
     Dates: start: 20110201
  5. SEROQUEL [Suspect]
     Indication: BIPOLAR DISORDER
     Route: 048
     Dates: start: 20060101, end: 20100401
  6. SEROQUEL [Suspect]
     Route: 048
     Dates: end: 20100901
  7. SEROQUEL [Suspect]
     Dosage: HALF OF A 300 MG TABLET AT NIGHT
     Route: 048
     Dates: start: 20100901
  8. PROPRANOLOL [Concomitant]
  9. ADDERALL 10 [Concomitant]
  10. SEROQUEL [Suspect]
     Route: 048
     Dates: start: 20110201
  11. KLONOPIN [Concomitant]
  12. SEROQUEL [Suspect]
     Route: 048
     Dates: end: 20100901
  13. SEROQUEL [Suspect]
     Route: 048
     Dates: start: 20100401
  14. SEROQUEL [Suspect]
     Route: 048
     Dates: end: 20100901
  15. SEROQUEL [Suspect]
     Dosage: HALF OF A 300 MG TABLET AT NIGHT
     Route: 048
     Dates: start: 20100901
  16. LITHIUM [Concomitant]
     Indication: BIPOLAR DISORDER
     Route: 048
  17. SEROQUEL [Suspect]
     Route: 048
     Dates: start: 20100401
  18. SEROQUEL [Suspect]
     Route: 048
     Dates: start: 20100401
  19. SEROQUEL [Suspect]
     Route: 048
     Dates: start: 20110201

REACTIONS (17)
  - HYPERHIDROSIS [None]
  - HUNGER [None]
  - TREMOR [None]
  - INCORRECT DOSE ADMINISTERED [None]
  - HEADACHE [None]
  - MOOD SWINGS [None]
  - CRYING [None]
  - AGITATION [None]
  - INSOMNIA [None]
  - DRUG WITHDRAWAL SYNDROME [None]
  - DEPRESSION [None]
  - CHILLS [None]
  - WRONG TECHNIQUE IN DRUG USAGE PROCESS [None]
  - MANIA [None]
  - DRUG DOSE OMISSION [None]
  - ANGER [None]
  - NAUSEA [None]
